FAERS Safety Report 15476312 (Version 1)
Quarter: 2018Q4

REPORT INFORMATION
  Report Type: Report from Study
  Country: CA (occurrence: CA)
  Receive Date: 20181009
  Receipt Date: 20181009
  Transmission Date: 20190205
  Serious: Yes (Death)
  Sender: FDA-Public Use
  Company Number: PHHY2018CA106526

PATIENT
  Sex: Female

DRUGS (1)
  1. AFINITOR [Suspect]
     Active Substance: EVEROLIMUS
     Indication: BREAST CANCER
     Dosage: 10 MG, QD
     Route: 048

REACTIONS (7)
  - Vomiting [Unknown]
  - Constipation [Unknown]
  - Nausea [Unknown]
  - Death [Fatal]
  - Dizziness [Unknown]
  - Dysarthria [Unknown]
  - Balance disorder [Unknown]
